FAERS Safety Report 5236013-X (Version None)
Quarter: 2007Q1

REPORT INFORMATION
  Report Type: 
  Country: None (occurrence: None)
  Receive Date: 20061208
  Receipt Date: 20060322
  Transmission Date: 20070707
  Serious: Yes (Other)
  Sender: FDA-Public Use
  Company Number: 2006UW04977

PATIENT
  Age: 80 Year
  Weight: 65.77 kg

DRUGS (5)
  1. CRESTOR [Suspect]
     Indication: BLOOD CHOLESTEROL INCREASED
     Dosage: 5 MG PO
     Route: 048
     Dates: start: 20051101, end: 20060317
  2. TOPROL-XL [Concomitant]
  3. DIOVANE [Concomitant]
  4. ASPIRIN [Concomitant]
  5. ASTELIN [Concomitant]

REACTIONS (2)
  - LABORATORY TEST ABNORMAL [None]
  - MICROALBUMINURIA [None]
